FAERS Safety Report 13028439 (Version 1)
Quarter: 2016Q4

REPORT INFORMATION
  Report Type: Spontaneous
  Country: GB (occurrence: GB)
  Receive Date: 20161214
  Receipt Date: 20161214
  Transmission Date: 20170207
  Serious: Yes (Other)
  Sender: FDA-Public Use
  Company Number: GB-TEVA-717928ACC

PATIENT
  Age: 57 Year
  Sex: Male
  Weight: 82.9 kg

DRUGS (2)
  1. TEVA UK GABAPENTIN [Suspect]
     Active Substance: GABAPENTIN
     Indication: AUTONOMIC NERVOUS SYSTEM IMBALANCE
     Dosage: 300 MILLIGRAM DAILY;
     Route: 048
     Dates: start: 20161024
  2. OMEPRAZOLE. [Concomitant]
     Active Substance: OMEPRAZOLE
     Dosage: 80 MILLIGRAM DAILY;

REACTIONS (4)
  - Off label use [Unknown]
  - Disturbance in attention [Unknown]
  - Cognitive disorder [Unknown]
  - Amnesia [Recovered/Resolved]

NARRATIVE: CASE EVENT DATE: 20161027
